FAERS Safety Report 5612118-6 (Version None)
Quarter: 2008Q1

REPORT INFORMATION
  Report Type: 
  Country: None (occurrence: None)
  Receive Date: 20080204
  Receipt Date: 20080130
  Transmission Date: 20080703
  Serious: Yes (Other)
  Sender: FDA-Public Use
  Company Number: GB-BRISTOL-MYERS SQUIBB COMPANY-14062491

PATIENT
  Age: 67 Year
  Sex: Male

DRUGS (4)
  1. CETUXIMAB [Suspect]
  2. FLUOROURACIL [Concomitant]
  3. FOLINIC ACID [Concomitant]
  4. IRINOTECAN HCL [Concomitant]

REACTIONS (3)
  - ANAEMIA [None]
  - DIARRHOEA [None]
  - NEUTROPENIA [None]
